FAERS Safety Report 7368149-1 (Version None)
Quarter: 2011Q1

REPORT INFORMATION
  Report Type: 
  Country: None (occurrence: None)
  Receive Date: 20110323
  Receipt Date: 20110311
  Transmission Date: 20110831
  Serious: Yes (Hospitalization, Other)
  Sender: FDA-Public Use
  Company Number: US-PFIZER INC-2006069800

PATIENT
  Sex: Male

DRUGS (2)
  1. NEURONTIN [Suspect]
     Dosage: 400 MG, 3X/DAY
     Dates: start: 20000228, end: 20000408
  2. NEURONTIN [Suspect]
     Dosage: 400 MG, 2 TABLETS EVERY 8 HRS
     Dates: start: 19990108

REACTIONS (1)
  - SUICIDE ATTEMPT [None]
